FAERS Safety Report 6987777-6 (Version None)
Quarter: 2010Q3

REPORT INFORMATION
  Report Type: 
  Country: None (occurrence: None)
  Receive Date: 20100916
  Receipt Date: 20100909
  Transmission Date: 20110219
  Serious: Yes (Hospitalization)
  Sender: FDA-Public Use
  Company Number: PHHY2010GR59954

PATIENT
  Age: 56 Year
  Sex: Male

DRUGS (1)
  1. EXTAVIA [Suspect]

REACTIONS (4)
  - ARTHRALGIA [None]
  - BONE PAIN [None]
  - HYPERHIDROSIS [None]
  - PYREXIA [None]
